FAERS Safety Report 4809841-X (Version None)
Quarter: 2005Q4

REPORT INFORMATION
  Report Type: 
  Country: None (occurrence: None)
  Receive Date: 20051026
  Receipt Date: 20051014
  Transmission Date: 20060501
  Serious: Yes (Death, Hospitalization)
  Sender: FDA-Public Use
  Company Number: JP-JNJFOC-20050600339

PATIENT
  Sex: Male
  Weight: 55.85 kg

DRUGS (1)
  1. REMICADE [Suspect]
     Indication: CROHN'S DISEASE
     Route: 042

REACTIONS (4)
  - ABDOMINAL DISTENSION [None]
  - COLON CANCER [None]
  - DRUG INEFFECTIVE [None]
  - MALIGNANT ASCITES [None]
